FAERS Safety Report 14000559 (Version 3)
Quarter: 2017Q4

REPORT INFORMATION
  Report Type: Spontaneous
  Country: BR (occurrence: BR)
  Receive Date: 20170922
  Receipt Date: 20171101
  Transmission Date: 20180321
  Serious: Yes (Hospitalization)
  Sender: FDA-Public Use
  Company Number: BR-BAUSCH-BL-2017-008106

PATIENT
  Age: 73 Year
  Sex: Male
  Weight: 63 kg

DRUGS (4)
  1. TIMOPTOL [Suspect]
     Active Substance: TIMOLOL
     Indication: INTRAOCULAR PRESSURE TEST
     Route: 047
     Dates: start: 201612
  2. TIMOPTOL [Suspect]
     Active Substance: TIMOLOL
     Route: 047
     Dates: start: 20170904
  3. NEOVITE LUTEIN [Concomitant]
     Indication: PRODUCT USED FOR UNKNOWN INDICATION
  4. TIMOPTOL [Suspect]
     Active Substance: TIMOLOL
     Indication: GLAUCOMA
     Route: 047
     Dates: end: 20170904

REACTIONS (6)
  - Incorrect dose administered [Unknown]
  - Foreign body sensation in eyes [Recovered/Resolved]
  - Product leakage [Unknown]
  - Stent placement [Recovered/Resolved]
  - Arterial occlusive disease [Unknown]
  - Product leakage [Unknown]

NARRATIVE: CASE EVENT DATE: 201606
